FAERS Safety Report 11801411 (Version 2)
Quarter: 2015Q4

REPORT INFORMATION
  Report Type: Spontaneous
  Country: IT (occurrence: IT)
  Receive Date: 20151204
  Receipt Date: 20151223
  Transmission Date: 20160305
  Serious: Yes (Hospitalization)
  Sender: FDA-Public Use
  Company Number: IT-ELI_LILLY_AND_COMPANY-IT201511008417

PATIENT
  Age: 48 Year
  Sex: Female

DRUGS (5)
  1. RIVOTRIL [Suspect]
     Active Substance: CLONAZEPAM
     Indication: PRODUCT USED FOR UNKNOWN INDICATION
     Dosage: 6 DF, SINGLE
     Route: 048
     Dates: start: 20151121, end: 20151121
  2. CYMBALTA [Suspect]
     Active Substance: DULOXETINE HYDROCHLORIDE
     Indication: DEPRESSION
     Dosage: UNK, UNKNOWN
     Route: 065
     Dates: end: 20151121
  3. CITALOPRAM [Suspect]
     Active Substance: CITALOPRAM HYDROBROMIDE
     Indication: PRODUCT USED FOR UNKNOWN INDICATION
     Dosage: 100 MG, SINGLE
     Route: 048
     Dates: start: 20151121, end: 20151121
  4. DEPAKIN CHRONO                     /00228502/ [Suspect]
     Active Substance: VALPROIC ACID
     Indication: PRODUCT USED FOR UNKNOWN INDICATION
     Dosage: 5 DF, SINGLE
     Route: 048
     Dates: start: 20151121, end: 20151121
  5. CYMBALTA [Suspect]
     Active Substance: DULOXETINE HYDROCHLORIDE
     Dosage: 450 MG, SINGLE
     Route: 048
     Dates: start: 20151121, end: 20151121

REACTIONS (5)
  - Agitation [Recovered/Resolved]
  - Intentional self-injury [Recovered/Resolved]
  - Aggression [Recovered/Resolved]
  - Intentional overdose [Recovered/Resolved]
  - Drug abuse [Recovered/Resolved]

NARRATIVE: CASE EVENT DATE: 20151121
